FAERS Safety Report 8255268-0 (Version None)
Quarter: 2012Q1

REPORT INFORMATION
  Report Type: 
  Country: None (occurrence: None)
  Receive Date: 20120329
  Receipt Date: 20120316
  Transmission Date: 20120608
  Serious: Yes (Hospitalization)
  Sender: FDA-Public Use
  Company Number: DSA_55793_2012

PATIENT
  Sex: Male

DRUGS (20)
  1. METHOTREXATE SODIUM [Concomitant]
  2. NICARDIPINE HYDROCHLORIDE [Concomitant]
  3. SIMVASTATIN [Concomitant]
  4. ESIDRIX [Concomitant]
  5. ESCITALOPRAM OXALATE [Concomitant]
  6. TENORMIN [Concomitant]
  7. XANAX [Concomitant]
  8. AMITRIPTYLINE HCL [Concomitant]
  9. FLAGYL [Suspect]
     Indication: PRODUCT USED FOR UNKNOWN INDICATION
     Dosage: (500 MG, ORAL)
     Route: 048
     Dates: start: 20111030, end: 20111104
  10. ACETAMINOPHEN [Suspect]
     Indication: PRODUCT USED FOR UNKNOWN INDICATION
     Dosage: (2 G TID ORAL)
     Route: 048
     Dates: start: 20111024, end: 20111107
  11. ACTONEL [Concomitant]
  12. RAMIPRIL [Concomitant]
  13. IMOVANE [Concomitant]
  14. TRAMADOL HYDROCHLORIDE [Suspect]
     Indication: PRODUCT USED FOR UNKNOWN INDICATION
     Dosage: (200 MG BID ORAL)
     Route: 048
     Dates: start: 20111024, end: 20111107
  15. CIMZIA [Concomitant]
  16. NEXIUM [Concomitant]
  17. PROCORALAN [Concomitant]
  18. AMOXICILLIN (AMOXICILLIN - CLAVULANIC ACID) 1 DF [Suspect]
     Indication: PRODUCT USED FOR UNKNOWN INDICATION
     Dosage: (1 DF, ORAL0
     Route: 048
     Dates: start: 20111025, end: 20111103
  19. EZETIMIBE [Concomitant]
  20. ASPIRIN [Concomitant]

REACTIONS (5)
  - BLOOD ALKALINE PHOSPHATASE INCREASED [None]
  - ASPARTATE AMINOTRANSFERASE INCREASED [None]
  - ALANINE AMINOTRANSFERASE INCREASED [None]
  - GAMMA-GLUTAMYLTRANSFERASE INCREASED [None]
  - SINUSITIS [None]
